FAERS Safety Report 6063355-0 (Version None)
Quarter: 2009Q1

REPORT INFORMATION
  Report Type: 
  Country: None (occurrence: None)
  Receive Date: 20090129
  Receipt Date: 20090127
  Transmission Date: 20090719
  Serious: Yes (Hospitalization)
  Sender: FDA-Public Use
  Company Number: 2008AL006820

PATIENT
  Age: 55 Year
  Sex: Male
  Weight: 107.5025 kg

DRUGS (7)
  1. DIGOXIN [Suspect]
     Indication: ATRIAL FIBRILLATION
     Dosage: 0.25MG, DAILY, PO
     Route: 048
     Dates: start: 20071001, end: 20071101
  2. NOVOLOG [Concomitant]
  3. LOPRESSOR [Concomitant]
  4. LANTUS [Concomitant]
  5. XANAX [Concomitant]
  6. TETRACYCLINE [Concomitant]
  7. CARDIZEM [Concomitant]

REACTIONS (5)
  - ASTHENIA [None]
  - FATIGUE [None]
  - LETHARGY [None]
  - NAUSEA [None]
  - TREMOR [None]
